FAERS Safety Report 19485308 (Version 3)
Quarter: 2021Q3

REPORT INFORMATION
  Report Type: Report from Study
  Country: None (occurrence: CA)
  Receive Date: 20210702
  Receipt Date: 20210717
  Transmission Date: 20211014
  Serious: Yes (Other)
  Sender: FDA-Public Use
  Company Number: CA-ABBVIE-21K-028-3972893-00

PATIENT
  Sex: Female

DRUGS (2)
  1. RINVOQ [Suspect]
     Active Substance: UPADACITINIB
     Indication: RHEUMATOID ARTHRITIS
     Route: 048
     Dates: start: 20200423, end: 20210614
  2. RINVOQ [Suspect]
     Active Substance: UPADACITINIB
     Route: 048
     Dates: start: 20210708

REACTIONS (7)
  - Malaise [Unknown]
  - Vomiting [Unknown]
  - Knee operation [Unknown]
  - Rheumatoid arthritis [Unknown]
  - Psychiatric symptom [Unknown]
  - Drug intolerance [Unknown]
  - Exercise tolerance decreased [Unknown]
